FAERS Safety Report 12631912 (Version 2)
Quarter: 2016Q3

REPORT INFORMATION
  Report Type: Spontaneous
  Country: US (occurrence: US)
  Receive Date: 20160808
  Receipt Date: 20160808
  Transmission Date: 20161109
  Serious: No
  Sender: FDA-Public Use
  Company Number: US-BEH-2016061407

PATIENT
  Sex: Female
  Weight: 105 kg

DRUGS (35)
  1. NORVASC [Concomitant]
     Active Substance: AMLODIPINE BESYLATE
  2. CRESTOR [Concomitant]
     Active Substance: ROSUVASTATIN CALCIUM
  3. ISOSORBIDE MONONITRATE EXTENDED RELEASE [Concomitant]
     Active Substance: ISOSORBIDE MONONITRATE
  4. MESTINON [Concomitant]
     Active Substance: PYRIDOSTIGMINE BROMIDE
  5. HIZENTRA [Suspect]
     Active Substance: HUMAN IMMUNOGLOBULIN G
     Indication: IDIOPATHIC URTICARIA
     Route: 058
  6. PREDNISONE. [Concomitant]
     Active Substance: PREDNISONE
  7. SINGULAIR [Concomitant]
     Active Substance: MONTELUKAST SODIUM
  8. NITROSTAT [Concomitant]
     Active Substance: NITROGLYCERIN
  9. CROMOLYN SODIUM. [Concomitant]
     Active Substance: CROMOLYN SODIUM
  10. NEXIUM [Concomitant]
     Active Substance: ESOMEPRAZOLE MAGNESIUM
  11. BENTYL [Concomitant]
     Active Substance: DICYCLOMINE HYDROCHLORIDE
  12. XOLAIR [Concomitant]
     Active Substance: OMALIZUMAB
  13. SYNTHROID [Concomitant]
     Active Substance: LEVOTHYROXINE SODIUM
  14. PROVENTIL [Concomitant]
     Active Substance: ALBUTEROL
  15. HYDROXYZINE [Concomitant]
     Active Substance: HYDROXYZINE\HYDROXYZINE HYDROCHLORIDE
  16. WELLBUTRIN [Concomitant]
     Active Substance: BUPROPION HYDROCHLORIDE
  17. ZANTAC [Concomitant]
     Active Substance: RANITIDINE HYDROCHLORIDE
  18. HIZENTRA [Suspect]
     Active Substance: HUMAN IMMUNOGLOBULIN G
     Indication: AUTOIMMUNE DISORDER
     Route: 058
  19. CIPRO [Concomitant]
     Active Substance: CIPROFLOXACIN HYDROCHLORIDE
  20. MACRODANTIN [Concomitant]
     Active Substance: NITROFURANTOIN
  21. MACROBID [Concomitant]
     Active Substance: NITROFURANTOIN\NITROFURANTOIN MONOHYDRATE
  22. XANAX [Concomitant]
     Active Substance: ALPRAZOLAM
  23. ADVAIR HFA [Concomitant]
     Active Substance: FLUTICASONE PROPIONATE\SALMETEROL XINAFOATE
  24. CATAPRES-TTS 2 [Concomitant]
  25. BELLADONNA AND DERIVATIVES [Concomitant]
  26. EPIPEN [Concomitant]
     Active Substance: EPINEPHRINE
  27. L-M-X [Concomitant]
  28. PREDNISONE. [Concomitant]
     Active Substance: PREDNISONE
  29. GASTROCROM [Concomitant]
     Active Substance: CROMOLYN SODIUM
  30. ACETAMINOPHEN. [Concomitant]
     Active Substance: ACETAMINOPHEN
  31. LEXAPRO [Concomitant]
     Active Substance: ESCITALOPRAM OXALATE
  32. MORPHINE SULFATE. [Concomitant]
     Active Substance: MORPHINE SULFATE
  33. HIZENTRA [Suspect]
     Active Substance: HUMAN IMMUNOGLOBULIN G
     Indication: ASTHMA
     Route: 058
  34. DIPHENHYDRAMINE. [Concomitant]
     Active Substance: DIPHENHYDRAMINE
  35. ZOFRAN [Concomitant]
     Active Substance: ONDANSETRON HYDROCHLORIDE

REACTIONS (1)
  - Urinary tract infection [Unknown]
